FAERS Safety Report 23598228 (Version 5)
Quarter: 2024Q2

REPORT INFORMATION
  Report Type: Report from Study
  Country: US (occurrence: US)
  Receive Date: 20240305
  Receipt Date: 20240423
  Transmission Date: 20240716
  Serious: Yes (Hospitalization)
  Sender: FDA-Public Use
  Company Number: US-JNJFOC-20231249281

PATIENT
  Age: 53 Year
  Sex: Female
  Weight: 47.7 kg

DRUGS (5)
  1. EPOPROSTENOL SODIUM [Suspect]
     Active Substance: EPOPROSTENOL SODIUM
     Indication: Pulmonary arterial hypertension
     Route: 042
  2. EPOPROSTENOL SODIUM [Suspect]
     Active Substance: EPOPROSTENOL SODIUM
     Route: 042
  3. DEVICE\POLYURETHANE [Suspect]
     Active Substance: DEVICE\POLYURETHANE
     Route: 065
  4. TADALAFIL [Concomitant]
     Active Substance: TADALAFIL
  5. OPSUMIT [Concomitant]
     Active Substance: MACITENTAN

REACTIONS (10)
  - Pleural effusion [Unknown]
  - Diarrhoea [Unknown]
  - Pain in extremity [Unknown]
  - Dyspnoea [Unknown]
  - Infusion site erythema [Unknown]
  - Device leakage [Unknown]
  - Device related infection [Unknown]
  - Underdose [Unknown]
  - Skin irritation [Unknown]
  - Device alarm issue [Recovered/Resolved]

NARRATIVE: CASE EVENT DATE: 20231215
